FAERS Safety Report 8491753-4 (Version None)
Quarter: 2012Q3

REPORT INFORMATION
  Report Type: 
  Country: None (occurrence: None)
  Receive Date: 20120706
  Receipt Date: 20120629
  Transmission Date: 20120928
  Serious: Yes (Hospitalization)
  Sender: FDA-Public Use
  Company Number: AR-BRISTOL-MYERS SQUIBB COMPANY-15705650

PATIENT
  Age: 71 Year
  Sex: Female

DRUGS (4)
  1. PLACEBO [Suspect]
     Indication: TYPE 2 DIABETES MELLITUS
     Dates: start: 20110209
  2. GLICLAZIDE [Suspect]
     Indication: TYPE 2 DIABETES MELLITUS
  3. BLINDED: SAXAGLIPTIN [Suspect]
     Indication: TYPE 2 DIABETES MELLITUS
     Dosage: INTERRUPTED ON 15FEB201; RESTARTED ON 22FEB2011
     Dates: start: 20110209
  4. ENALAPRIL MALEATE [Suspect]

REACTIONS (1)
  - CHOLELITHIASIS [None]
